FAERS Safety Report 25005093 (Version 1)
Quarter: 2025Q1

REPORT INFORMATION
  Report Type: Spontaneous
  Country: ES (occurrence: ES)
  Receive Date: 20250224
  Receipt Date: 20250224
  Transmission Date: 20250408
  Serious: Yes (Hospitalization, Other)
  Sender: AMGEN
  Company Number: ES-AMGEN-ESPSP2025033254

PATIENT

DRUGS (1)
  1. ADALIMUMAB [Suspect]
     Active Substance: ADALIMUMAB
     Indication: Psoriasis
     Route: 065

REACTIONS (11)
  - Unevaluable event [Unknown]
  - Psoriatic arthropathy [Unknown]
  - Therapeutic product effect decreased [Unknown]
  - Treatment failure [Unknown]
  - Arthralgia [Unknown]
  - COVID-19 [Unknown]
  - Injection site pain [Unknown]
  - Injection site pruritus [Unknown]
  - Influenza like illness [Unknown]
  - Eczema [Unknown]
  - Upper respiratory tract infection [Unknown]
